FAERS Safety Report 23277118 (Version 1)
Quarter: 2023Q4

REPORT INFORMATION
  Report Type: Spontaneous
  Country: IT (occurrence: IT)
  Receive Date: 20231208
  Receipt Date: 20231208
  Transmission Date: 20240110
  Serious: Yes (Death, Life-Threatening, Other)
  Sender: FDA-Public Use
  Company Number: IT-Accord-394051

PATIENT
  Age: 57 Year
  Sex: Female
  Weight: 84 kg

DRUGS (3)
  1. DILTIAZEM [Suspect]
     Active Substance: DILTIAZEM
     Indication: Product used for unknown indication
     Dosage: 8 UNITES OF DLTZ 200 MG, SUSTAINED RELEASE
     Route: 048
  2. DIAZEPAM [Concomitant]
     Active Substance: DIAZEPAM
  3. PHENOBARBITAL [Concomitant]
     Active Substance: PHENOBARBITAL

REACTIONS (6)
  - Brain oedema [Fatal]
  - Pulmonary oedema [Fatal]
  - Petechiae [Fatal]
  - Myocardial fibrosis [Fatal]
  - Intentional overdose [Fatal]
  - Visceral congestion [Fatal]
